FAERS Safety Report 23792234 (Version 1)
Quarter: 2024Q2

REPORT INFORMATION
  Report Type: Spontaneous
  Country: US (occurrence: US)
  Receive Date: 20240429
  Receipt Date: 20240429
  Transmission Date: 20240716
  Serious: No
  Sender: FDA-Public Use
  Company Number: US-TEVA-VS-3139319

PATIENT
  Age: 47 Year
  Sex: Male

DRUGS (2)
  1. UZEDY [Suspect]
     Active Substance: RISPERIDONE
     Indication: Schizophrenia
     Dosage: 125/0.35 MG/ML
     Route: 065
     Dates: start: 20230922
  2. HYDROXYZINE HYDROCHLORIDE [Concomitant]
     Active Substance: HYDROXYZINE HYDROCHLORIDE
     Route: 065

REACTIONS (9)
  - Dyskinesia [Unknown]
  - Speech disorder [Unknown]
  - Mood altered [Unknown]
  - Feeling abnormal [Unknown]
  - Dyskinesia [Unknown]
  - Dysarthria [Unknown]
  - Dyskinesia [Unknown]
  - Psychotic behaviour [Unknown]
  - Depression [Unknown]
